FAERS Safety Report 16353592 (Version 3)
Quarter: 2019Q3

REPORT INFORMATION
  Report Type: Report from Study
  Country: US (occurrence: US)
  Receive Date: 20190524
  Receipt Date: 20190823
  Transmission Date: 20191004
  Serious: Yes (Life-Threatening, Hospitalization)
  Sender: FDA-Public Use
  Company Number: US-PFIZER INC-2019212884

PATIENT
  Age: 53 Year
  Sex: Female
  Weight: 89.4 kg

DRUGS (41)
  1. PLACEBO [Suspect]
     Active Substance: UNSPECIFIED INGREDIENT
     Indication: ACUTE MYELOID LEUKAEMIA
     Dosage: ONCE DAILY CONTINUOUS
     Route: 048
     Dates: start: 20190322, end: 20190516
  2. DECADRON [Concomitant]
     Active Substance: DEXAMETHASONE
     Indication: CHEMOTHERAPY
     Dosage: 12 MG, 1X/DAY
     Route: 048
     Dates: start: 20190502, end: 20190506
  3. TYLENOL [Concomitant]
     Active Substance: ACETAMINOPHEN
     Indication: PAIN
     Dosage: 650 MG, EVERY 6 HOURS
     Route: 048
     Dates: start: 20190502
  4. LIDOCAINE HYDROCHLORIDE. [Concomitant]
     Active Substance: LIDOCAINE HYDROCHLORIDE
     Indication: CENTRAL VENOUS CATHETERISATION
     Dosage: 1 ML, SINGLE
     Route: 062
     Dates: start: 20190502, end: 20190502
  5. ESTRACE [Concomitant]
     Active Substance: ESTRADIOL
     Indication: VAGINAL HAEMORRHAGE
     Dosage: 2 G, 1X/DAY ON MON, WED AND FRI
     Route: 067
     Dates: start: 20190506
  6. PROMETRIUM [Concomitant]
     Active Substance: PROGESTERONE
     Indication: MENOPAUSE
     Dosage: 300 MG, 1X/DAY
     Route: 048
     Dates: start: 2019, end: 20190516
  7. MAGONATE [Concomitant]
     Active Substance: MAGNESIUM CARBONATE
     Indication: MALNUTRITION
     Dosage: 500 MG, 1X/DAY
     Route: 048
     Dates: start: 20190502
  8. NEULASTA [Concomitant]
     Active Substance: PEGFILGRASTIM
     Indication: PANCYTOPENIA
     Dosage: 6 MG, SINGLE
     Route: 058
     Dates: start: 20190509, end: 20190509
  9. KEPPRA [Concomitant]
     Active Substance: LEVETIRACETAM
     Indication: SEIZURE PROPHYLAXIS
     Dosage: 1500 MG, SINGLE; 1500 MG/L100 ML
     Route: 042
     Dates: start: 20190515, end: 20190515
  10. DAUNORUBICIN [Suspect]
     Active Substance: DAUNORUBICIN
     Indication: ACUTE MYELOID LEUKAEMIA
     Dosage: 126 MG, DAILY BY CONTINUOUS INFUSION
     Route: 041
     Dates: start: 20190322, end: 20190324
  11. NALTREXONE [Concomitant]
     Active Substance: NALTREXONE
     Indication: PAIN
     Dosage: 4 MG, NIGHTLY
     Route: 048
     Dates: start: 20190502, end: 20190506
  12. LOPRESSOR [Concomitant]
     Active Substance: METOPROLOL TARTRATE
     Indication: HYPERTENSION
     Dosage: 25 MG, 1X/DAY
     Route: 048
     Dates: start: 2019
  13. DEMADEX [Concomitant]
     Active Substance: TORSEMIDE
     Indication: OEDEMA
     Dosage: 5 MG, 1X/DAY
     Route: 048
     Dates: start: 20190503, end: 20190507
  14. MAG-OX [Concomitant]
     Active Substance: MAGNESIUM OXIDE
     Indication: PROPHYLAXIS
  15. ZOVIRAX [Concomitant]
     Active Substance: ACYCLOVIR
     Indication: INFECTION PROPHYLAXIS
     Dosage: 400 MG, 2X/DAY
     Route: 048
     Dates: start: 20190507
  16. SODIUM CHLORIDE. [Concomitant]
     Active Substance: SODIUM CHLORIDE
     Indication: DEHYDRATION
  17. PRILOSEC [Concomitant]
     Active Substance: OMEPRAZOLE MAGNESIUM
     Indication: PROPHYLAXIS
     Dosage: 40 MG, EVERY MORNING (QAM)
     Route: 048
     Dates: start: 20190422
  18. MIRALAX [Concomitant]
     Active Substance: POLYETHYLENE GLYCOL 3350
     Indication: CONSTIPATION
     Dosage: 17 G, AS NEEDED
     Route: 048
     Dates: start: 2019
  19. THERAGRAN [VITAMINS NOS] [Concomitant]
     Indication: PROPHYLAXIS
  20. MAG-OX [Concomitant]
     Active Substance: MAGNESIUM OXIDE
     Indication: MALNUTRITION
     Dosage: 500 MG, 1X/DAY
     Route: 048
     Dates: start: 2019
  21. ATARAX [Concomitant]
     Active Substance: HYDROXYZINE HYDROCHLORIDE
     Indication: RASH PRURITIC
     Dosage: 25 MG, THREE TIMES A DAY AS NEEDED
     Route: 048
     Dates: start: 20190503
  22. SENOKOT [Concomitant]
     Active Substance: SENNOSIDES
     Indication: CONSTIPATION
     Dosage: 1 TABLET NIGHTLY
     Route: 048
     Dates: start: 20190503, end: 20190506
  23. COLACE [Concomitant]
     Active Substance: DOCUSATE SODIUM
     Indication: CONSTIPATION
     Dosage: 100 MG, 2X/DAY
     Route: 048
     Dates: start: 20190503, end: 20190507
  24. CYTARABINE. [Suspect]
     Active Substance: CYTARABINE
     Indication: ACUTE MYELOID LEUKAEMIA
     Dosage: 210 MG, DAILY BY CONTINUOUS INFUSION (INDUCTION)
     Route: 041
     Dates: start: 20190322, end: 20190329
  25. THERAGRAN [VITAMINS NOS] [Concomitant]
     Indication: MALNUTRITION
     Dosage: 1 TABLET, 1X/DAY
     Route: 048
     Dates: start: 2019
  26. COMPAZINE [PROCHLORPERAZINE EDISYLATE] [Concomitant]
     Active Substance: PROCHLORPERAZINE EDISYLATE
     Indication: NAUSEA
     Dosage: 10 MG, EVERY 6 HOURS
     Route: 048
     Dates: start: 20190502
  27. MAGONATE [Concomitant]
     Active Substance: MAGNESIUM CARBONATE
     Indication: PROPHYLAXIS
  28. CYTARABINE. [Suspect]
     Active Substance: CYTARABINE
     Indication: ACUTE MYELOID LEUKAEMIA
     Dosage: 3 G, OVER 3 HOURS TWICE DAILY ON DAYS 1, 3, 5 (CONSOLIDATION)
     Route: 042
     Dates: start: 20190502, end: 20190507
  29. VITAMIN D [COLECALCIFEROL] [Concomitant]
     Active Substance: CHOLECALCIFEROL
     Indication: MALNUTRITION
  30. BUSPAR [Concomitant]
     Active Substance: BUSPIRONE HYDROCHLORIDE
     Indication: ANXIETY
     Dosage: 10 MG, 3X/DAY
     Route: 048
     Dates: start: 2019
  31. PRED FORTE [Concomitant]
     Active Substance: PREDNISOLONE ACETATE
     Indication: CHEMOTHERAPY
     Dosage: 2 GTT, 4X/DAY, BOTH EYES
     Route: 047
     Dates: start: 20190502, end: 20190510
  32. CIPRO [Concomitant]
     Active Substance: CIPROFLOXACIN HYDROCHLORIDE
     Indication: INFECTION PROPHYLAXIS
     Dosage: 500 MG, 2X/DAY
     Route: 048
     Dates: start: 20190507
  33. DIFLUCAN [Concomitant]
     Active Substance: FLUCONAZOLE
     Indication: INFECTION PROPHYLAXIS
     Dosage: 200 MG, 1X/DAY
     Route: 048
     Dates: start: 20190507
  34. SODIUM CHLORIDE. [Concomitant]
     Active Substance: SODIUM CHLORIDE
     Indication: HEADACHE
     Dosage: 500 ML, SINGLE BOLUS
     Route: 042
     Dates: start: 20190515, end: 20190515
  35. VITAMIN D [COLECALCIFEROL] [Concomitant]
     Active Substance: CHOLECALCIFEROL
     Indication: PROPHYLAXIS
     Dosage: 1000 IU, 1X/DAY
     Route: 048
     Dates: start: 20190503
  36. ZOFRAN [Concomitant]
     Active Substance: ONDANSETRON HYDROCHLORIDE
     Indication: NAUSEA
     Dosage: 8 MG, EVER 8 HOURS
     Route: 048
     Dates: start: 20190502, end: 20190507
  37. TYLENOL [Concomitant]
     Active Substance: ACETAMINOPHEN
     Indication: PYREXIA
     Dosage: 650 MG, SINGLE
     Route: 048
     Dates: start: 20190513, end: 20190513
  38. KENALOG [Concomitant]
     Active Substance: TRIAMCINOLONE ACETONIDE
     Indication: RASH
     Dosage: UNK
     Route: 061
     Dates: start: 20190504, end: 20190507
  39. GLYCOLAX [Concomitant]
     Active Substance: POLYETHYLENE GLYCOL 3350
     Indication: CONSTIPATION
     Dosage: 17 G, AS NEEDED
     Route: 048
     Dates: start: 2019
  40. TYLENOL [Concomitant]
     Active Substance: ACETAMINOPHEN
     Indication: PROPHYLAXIS
     Dosage: 650 MG, SINGLE
     Route: 048
     Dates: start: 20190515, end: 20190515
  41. LOVENOX [Concomitant]
     Active Substance: ENOXAPARIN SODIUM
     Indication: THROMBOSIS PROPHYLAXIS
     Dosage: 40 MG, 1X/DAY
     Route: 058
     Dates: start: 20190503, end: 20190506

REACTIONS (2)
  - Neutropenic sepsis [Recovered/Resolved]
  - Haemorrhage intracranial [Recovered/Resolved]

NARRATIVE: CASE EVENT DATE: 20190516
